FAERS Safety Report 12839992 (Version 2)
Quarter: 2017Q1

REPORT INFORMATION
  Report Type: Spontaneous
  Country: PE (occurrence: PE)
  Receive Date: 20161012
  Receipt Date: 20170124
  Transmission Date: 20170428
  Serious: Yes (Other)
  Sender: FDA-Public Use
  Company Number: PE-PFIZER INC-2016471356

PATIENT
  Age: 71 Year
  Sex: Female

DRUGS (2)
  1. XALATAN [Suspect]
     Active Substance: LATANOPROST
     Dosage: 1 GTT, DAILY (IN RIGHT EYE)
     Route: 047
     Dates: start: 2006
  2. XALATAN [Suspect]
     Active Substance: LATANOPROST
     Dosage: 1 GTT, DAILY (IN EACH EYE)
     Route: 047
     Dates: start: 20161221

REACTIONS (1)
  - Cataract [Unknown]

NARRATIVE: CASE EVENT DATE: 20160915
